FAERS Safety Report 25962653 (Version 1)
Quarter: 2025Q4

REPORT INFORMATION
  Report Type: Spontaneous
  Country: CA (occurrence: CA)
  Receive Date: 20251027
  Receipt Date: 20251027
  Transmission Date: 20260117
  Serious: Yes (Hospitalization, Other)
  Sender: ANI
  Company Number: CA-ANIPHARMA-2024-CA-005277

PATIENT
  Age: 61 Year
  Sex: Female
  Weight: 58 kg

DRUGS (17)
  1. CANDESARTAN CILEXETIL [Suspect]
     Active Substance: CANDESARTAN CILEXETIL
     Indication: Product used for unknown indication
     Dosage: 8 MILLIGRAM, QD
  2. LIFITEGRAST [Suspect]
     Active Substance: LIFITEGRAST
  3. MELOXICAM [Suspect]
     Active Substance: MELOXICAM
  4. METHYLPREDNISOLONE ACETATE [Suspect]
     Active Substance: METHYLPREDNISOLONE ACETATE
  5. ORENCIA [Suspect]
     Active Substance: ABATACEPT
  6. RABEPRAZOLE [Suspect]
     Active Substance: RABEPRAZOLE
     Dosage: 20 MILLIGRAM, QD
     Route: 048
  7. SIMPONI [Suspect]
     Active Substance: GOLIMUMAB
     Route: 058
  8. SULFASALAZINE [Suspect]
     Active Substance: SULFASALAZINE
  9. XELJANZ [Suspect]
     Active Substance: TOFACITINIB CITRATE
     Dosage: 5 MILLIGRAM, Q12H
     Route: 048
  10. ACETAMINOPHEN [Suspect]
     Active Substance: ACETAMINOPHEN
     Route: 048
  11. ACTEMRA [Suspect]
     Active Substance: TOCILIZUMAB
  12. BARICITINIB [Suspect]
     Active Substance: BARICITINIB
  13. CELEBREX [Suspect]
     Active Substance: CELECOXIB
     Dosage: 200 MILLIGRAM, Q12H
  14. CIMZIA [Suspect]
     Active Substance: CERTOLIZUMAB PEGOL
  15. DESOXIMETASONE [Suspect]
     Active Substance: DESOXIMETASONE
  16. DYMISTA [Suspect]
     Active Substance: AZELASTINE HYDROCHLORIDE\FLUTICASONE PROPIONATE
  17. ERELZI [Suspect]
     Active Substance: ETANERCEPT-SZZS

REACTIONS (5)
  - Arthritis [Unknown]
  - Blood folate decreased [Unknown]
  - Drug ineffective [Unknown]
  - Platelet count decreased [Unknown]
  - Pneumonia [Unknown]
